FAERS Safety Report 23419008 (Version 1)
Quarter: 2024Q1

REPORT INFORMATION
  Report Type: Other
  Country: US (occurrence: US)
  Receive Date: 20240118
  Receipt Date: 20240118
  Transmission Date: 20240410
  Serious: No
  Sender: FDA-Public Use
  Company Number: US-UROVANT SCIENCES GMBH-202312-URV-002369

PATIENT
  Sex: Female

DRUGS (3)
  1. GEMTESA [Suspect]
     Active Substance: VIBEGRON
     Indication: Incontinence
     Dosage: 75 MG, QD
     Route: 048
  2. GEMTESA [Suspect]
     Active Substance: VIBEGRON
     Dosage: 0.5 TAB, BID
     Route: 048
  3. GEMTESA [Suspect]
     Active Substance: VIBEGRON
     Dosage: 1 TAB, BID
     Route: 048

REACTIONS (3)
  - Drug effect less than expected [Unknown]
  - Wrong technique in product usage process [Unknown]
  - Intentional overdose [Not Recovered/Not Resolved]
